FAERS Safety Report 9285244 (Version 1)
Quarter: 2013Q2

REPORT INFORMATION
  Report Type: Spontaneous
  Country: AU (occurrence: AU)
  Receive Date: 20130513
  Receipt Date: 20130513
  Transmission Date: 20140414
  Serious: Yes (Other)
  Sender: FDA-Public Use
  Company Number: PHHY2013AU046800

PATIENT
  Sex: Female

DRUGS (8)
  1. ACLASTA [Suspect]
     Dosage: UNK UKN, UNK
     Route: 042
  2. FOSAMAX [Suspect]
     Dosage: UNK, ONCE WEEKLY
  3. CRESTOR [Concomitant]
     Dosage: UNK UKN, UNK
  4. ENDONE [Concomitant]
     Dosage: UNK UKN, UNK
  5. OXYCONTIN [Concomitant]
     Dosage: UNK UKN, UNK
  6. SPIRIVA [Concomitant]
     Dosage: UNK UKN, UNK
  7. SYMBICORT [Concomitant]
     Dosage: UNK UKN, UNK
  8. VENTOLINE [Concomitant]
     Dosage: UNK UKN, UNK

REACTIONS (2)
  - Exostosis [Unknown]
  - Osteonecrosis of jaw [Unknown]
